FAERS Safety Report 7498877-9 (Version None)
Quarter: 2011Q2

REPORT INFORMATION
  Report Type: 
  Country: None (occurrence: None)
  Receive Date: 20110524
  Receipt Date: 20110512
  Transmission Date: 20111010
  Serious: Yes (Hospitalization)
  Sender: FDA-Public Use
  Company Number: FR-ELI_LILLY_AND_COMPANY-FR201105003798

PATIENT
  Sex: Male
  Weight: 107.3 kg

DRUGS (2)
  1. OLANZAPINE [Suspect]
     Indication: SCHIZOPHRENIA
     Dosage: 405 MG, UNK
     Route: 030
     Dates: start: 20100601
  2. PHENOBARBITAL TAB [Concomitant]
     Indication: EPILEPSY
     Dosage: UNK
     Route: 048

REACTIONS (5)
  - SEDATION [None]
  - TACHYCARDIA [None]
  - EPILEPSY [None]
  - CONFUSIONAL STATE [None]
  - HYPERTENSION [None]
